FAERS Safety Report 15703545 (Version 1)
Quarter: 2018Q4

REPORT INFORMATION
  Report Type: Spontaneous
  Country: RU (occurrence: RU)
  Receive Date: 20181210
  Receipt Date: 20181210
  Transmission Date: 20190205
  Serious: Yes (Other)
  Sender: FDA-Public Use
  Company Number: RU-TEVA-2018-RU-986827

PATIENT
  Age: 72 Year
  Sex: Female

DRUGS (3)
  1. INGAVIRIN [Concomitant]
     Active Substance: INGAVIRIN
     Indication: RESPIRATORY DISORDER PROPHYLAXIS
     Route: 048
     Dates: start: 20170924
  2. ENALAPRIL [Suspect]
     Active Substance: ENALAPRIL
     Indication: HYPERTENSION
     Dosage: 5 MILLIGRAM DAILY;
     Route: 048
     Dates: start: 20170927
  3. INDAPAMIDE TEVA SANTE [Suspect]
     Active Substance: INDAPAMIDE
     Indication: HYPERTENSION
     Dosage: UNKNOWN DOSAGE
     Route: 048
     Dates: start: 20170927

REACTIONS (2)
  - Swelling [Recovering/Resolving]
  - Swollen tongue [Recovering/Resolving]

NARRATIVE: CASE EVENT DATE: 20170927
